FAERS Safety Report 7769411-0 (Version None)
Quarter: 2011Q3

REPORT INFORMATION
  Report Type: 
  Country: None (occurrence: None)
  Receive Date: 20110922
  Receipt Date: 20110513
  Transmission Date: 20111222
  Serious: No
  Sender: FDA-Public Use
  Company Number: US-ASTRAZENECA-2011SE29581

PATIENT
  Age: 25 Year
  Sex: Male

DRUGS (2)
  1. SEROQUEL [Suspect]
     Route: 048
  2. SERTRALINE HYDROCHLORIDE [Concomitant]

REACTIONS (3)
  - MENTAL DISORDER [None]
  - DISTURBANCE IN SOCIAL BEHAVIOUR [None]
  - DRUG DISPENSING ERROR [None]
